FAERS Safety Report 20446588 (Version 1)
Quarter: 2022Q1

REPORT INFORMATION
  Report Type: Spontaneous
  Country: US (occurrence: US)
  Receive Date: 20220208
  Receipt Date: 20220208
  Transmission Date: 20220423
  Serious: No
  Sender: FDA-Public Use
  Company Number: US-IBSA PHARMA INC.-2020IBS000292

PATIENT

DRUGS (1)
  1. TIROSINT-SOL [Suspect]
     Active Substance: LEVOTHYROXINE SODIUM
     Indication: Product used for unknown indication
     Dosage: 75 ?G, UNK
     Route: 048
     Dates: start: 20190819, end: 20190821

REACTIONS (4)
  - Gait disturbance [Unknown]
  - Chest pain [Unknown]
  - Dyspnoea [Unknown]
  - Muscular weakness [Unknown]
